FAERS Safety Report 11769100 (Version 1)
Quarter: 2015Q4

REPORT INFORMATION
  Report Type: Spontaneous
  Country: FR (occurrence: FR)
  Receive Date: 20151123
  Receipt Date: 20151123
  Transmission Date: 20160304
  Serious: Yes (Hospitalization)
  Sender: FDA-Public Use
  Company Number: FR-009507513-1511FRA010769

PATIENT
  Age: 70 Year
  Sex: Male

DRUGS (1)
  1. ONCOTICE [Suspect]
     Active Substance: BACILLUS CALMETTE-GUERIN SUBSTRAIN TICE LIVE ANTIGEN
     Indication: TRANSITIONAL CELL CARCINOMA
     Dosage: UNK
     Route: 050
     Dates: start: 20150604

REACTIONS (4)
  - Influenza [Recovered/Resolved]
  - Disseminated Bacillus Calmette-Guerin infection [Recovering/Resolving]
  - Cervical radiculopathy [Recovering/Resolving]
  - Granulomatous liver disease [Recovering/Resolving]

NARRATIVE: CASE EVENT DATE: 201510
